FAERS Safety Report 5317558-0 (Version None)
Quarter: 2007Q2

REPORT INFORMATION
  Report Type: 
  Country: None (occurrence: None)
  Receive Date: 20070507
  Receipt Date: 20070424
  Transmission Date: 20071010
  Serious: Yes (Other)
  Sender: FDA-Public Use
  Company Number: PHBS2007JP07244

PATIENT

DRUGS (4)
  1. GLEEVEC [Suspect]
     Indication: GASTROINTESTINAL STROMAL TUMOUR
  2. GLEEVEC [Suspect]
     Dosage: 100 MG/D
     Route: 048
  3. GLEEVEC [Suspect]
     Route: 048
  4. GLEEVEC [Suspect]
     Dosage: 100 MG/D
     Route: 048

REACTIONS (3)
  - CHOLANGITIS [None]
  - NIKOLSKY'S SIGN [None]
  - RASH [None]
